FAERS Safety Report 23223161 (Version 1)
Quarter: 2023Q4

REPORT INFORMATION
  Report Type: Other
  Country: None (occurrence: US)
  Receive Date: 20231123
  Receipt Date: 20231123
  Transmission Date: 20240110
  Serious: No
  Sender: FDA-Public Use
  Company Number: US-CHEMI SPA-2148644

PATIENT
  Sex: Female

DRUGS (2)
  1. TEMOZOLOMIDE [Suspect]
     Active Substance: TEMOZOLOMIDE
     Indication: Gastrointestinal stromal tumour
  2. OLAPARIB [Concomitant]
     Active Substance: OLAPARIB

REACTIONS (2)
  - Nausea [Unknown]
  - Off label use [Unknown]
